FAERS Safety Report 9467658 (Version 2)
Quarter: 2013Q3

REPORT INFORMATION
  Report Type: Spontaneous
  Country: MD (occurrence: MD)
  Receive Date: 20130821
  Receipt Date: 20130828
  Transmission Date: 20140515
  Serious: Yes (Death)
  Sender: FDA-Public Use
  Company Number: MD-NOVOPROD-385426

PATIENT
  Age: 39 Year
  Sex: Male
  Weight: 110 kg

DRUGS (1)
  1. ACTRAPID HM [Suspect]
     Indication: OFF LABEL USE
     Dosage: ACTRAPID HM 10 ML 3 VIALS
     Route: 065
     Dates: start: 20130801, end: 20130801

REACTIONS (2)
  - Completed suicide [Fatal]
  - Intentional drug misuse [Fatal]
